FAERS Safety Report 6254946-2 (Version None)
Quarter: 2009Q3

REPORT INFORMATION
  Report Type: 
  Country: None (occurrence: None)
  Receive Date: 20090702
  Receipt Date: 20090619
  Transmission Date: 20100115
  Serious: Yes (Other)
  Sender: FDA-Public Use
  Company Number: JP-PFIZER INC-2009218171

PATIENT
  Age: 61 Year

DRUGS (4)
  1. XALATAN [Suspect]
     Indication: NORMAL TENSION GLAUCOMA
     Dates: start: 20040801
  2. TIMOPTOL-XE [Concomitant]
     Route: 047
     Dates: start: 20070401, end: 20080201
  3. AZOPT [Concomitant]
     Route: 047
     Dates: start: 20050701
  4. TIMOPTIC [Concomitant]
     Dosage: UNK
     Dates: start: 20060101

REACTIONS (5)
  - BLOOD PRESSURE INCREASED [None]
  - BRADYCARDIA [None]
  - DYSPNOEA [None]
  - HEART RATE INCREASED [None]
  - PALPITATIONS [None]
